FAERS Safety Report 9429747 (Version 2)
Quarter: 2013Q3

REPORT INFORMATION
  Report Type: Report from Study
  Country: US (occurrence: US)
  Receive Date: 20130730
  Receipt Date: 20130808
  Transmission Date: 20140515
  Serious: Yes (Hospitalization)
  Sender: FDA-Public Use
  Company Number: US-ACTELION-A-US2013-86256

PATIENT
  Age: 9 Month
  Sex: Male

DRUGS (9)
  1. TRACLEER [Suspect]
     Indication: PULMONARY ARTERIAL HYPERTENSION
     Dosage: UNK
     Route: 048
     Dates: start: 201303
  2. SILDENAFIL [Concomitant]
  3. LASIX [Concomitant]
  4. ALDACTONE [Concomitant]
  5. KCL [Concomitant]
  6. IRON [Concomitant]
  7. PREVACID [Concomitant]
  8. REGLAN [Concomitant]
  9. VITAMIN D [Concomitant]

REACTIONS (2)
  - Vomiting [Recovering/Resolving]
  - Nasopharyngitis [Recovering/Resolving]
